FAERS Safety Report 5232487-9 (Version None)
Quarter: 2007Q1

REPORT INFORMATION
  Report Type: 
  Country: None (occurrence: None)
  Receive Date: 20070206
  Receipt Date: 20070206
  Transmission Date: 20070707
  Serious: Yes (Other)
  Sender: FDA-Public Use
  Company Number: None

PATIENT
  Age: 60 Year
  Sex: Female
  Weight: 68.0396 kg

DRUGS (1)
  1. LYRICA [Suspect]
     Indication: HERPES ZOSTER
     Dosage: PO
     Route: 048
     Dates: start: 20061117, end: 20061202

REACTIONS (5)
  - DYSARTHRIA [None]
  - DYSPHAGIA [None]
  - FEELING DRUNK [None]
  - SPEECH DISORDER [None]
  - TUNNEL VISION [None]
